FAERS Safety Report 20438508 (Version 2)
Quarter: 2022Q1

REPORT INFORMATION
  Report Type: Report from Study
  Country: US (occurrence: US)
  Receive Date: 20220207
  Receipt Date: 20220305
  Transmission Date: 20220423
  Serious: No
  Sender: FDA-Public Use
  Company Number: US-BRISTOL-MYERS SQUIBB COMPANY-BMS-2022-016636

PATIENT
  Age: 61 Year
  Sex: Female
  Weight: 121.1 kg

DRUGS (1)
  1. ABATACEPT [Suspect]
     Active Substance: ABATACEPT
     Indication: Rheumatoid arthritis
     Dosage: 125 MILLIGRAM, QWK
     Route: 058
     Dates: start: 20220111

REACTIONS (5)
  - Drug ineffective [Unknown]
  - Asthenia [Unknown]
  - Pain in extremity [Unknown]
  - Peripheral coldness [Unknown]
  - Device malfunction [Unknown]

NARRATIVE: CASE EVENT DATE: 20220223
